FAERS Safety Report 10911688 (Version 1)
Quarter: 2015Q1

REPORT INFORMATION
  Report Type: Spontaneous
  Country: US (occurrence: US)
  Receive Date: 20150313
  Receipt Date: 20150313
  Transmission Date: 20150721
  Serious: No
  Sender: FDA-Public Use
  Company Number: US-BIOGENIDEC-2015BI023313

PATIENT
  Sex: Female

DRUGS (2)
  1. TECFIDERA [Suspect]
     Active Substance: DIMETHYL FUMARATE
     Indication: RELAPSING-REMITTING MULTIPLE SCLEROSIS
  2. TECFIDERA [Suspect]
     Active Substance: DIMETHYL FUMARATE
     Indication: RELAPSING-REMITTING MULTIPLE SCLEROSIS
     Route: 048
     Dates: start: 2015

REACTIONS (33)
  - Frustration [Unknown]
  - Hypertension [Unknown]
  - Flushing [Unknown]
  - Crohn^s disease [Unknown]
  - Fear [Unknown]
  - Urinary incontinence [Unknown]
  - Drug intolerance [Unknown]
  - Aortic disorder [Unknown]
  - Dysuria [Unknown]
  - Vomiting [Unknown]
  - Weight decreased [Unknown]
  - Urinary tract infection [Unknown]
  - Nausea [Not Recovered/Not Resolved]
  - Rosacea [Unknown]
  - Hypophagia [Unknown]
  - Abdominal pain lower [Unknown]
  - Irritable bowel syndrome [Unknown]
  - Urine output decreased [Unknown]
  - Dehydration [Unknown]
  - Pain [Unknown]
  - Intentional product misuse [Unknown]
  - Multiple sclerosis [Unknown]
  - Burning sensation [Unknown]
  - Memory impairment [Unknown]
  - Hyperhidrosis [Unknown]
  - Band sensation [Unknown]
  - Anxiety [Unknown]
  - Stress [Unknown]
  - Gastric disorder [Unknown]
  - Abdominal pain upper [Not Recovered/Not Resolved]
  - Feeling hot [Unknown]
  - Gastrooesophageal reflux disease [Unknown]
  - Malaise [Unknown]
